FAERS Safety Report 17402955 (Version 2)
Quarter: 2020Q1

REPORT INFORMATION
  Report Type: Spontaneous
  Country: US (occurrence: US)
  Receive Date: 20200211
  Receipt Date: 20200211
  Transmission Date: 20200409
  Serious: Yes (Hospitalization)
  Sender: FDA-Public Use
  Company Number: US-PFIZER INC-K200801121

PATIENT
  Age: 56 Year
  Sex: Male

DRUGS (24)
  1. MORPHINE SULFATE IMMEDIATE RELEASE [Suspect]
     Active Substance: MORPHINE SULFATE
     Dosage: 120 MG, EVERY 3 HOURS PRN
     Route: 048
  2. DEXAMETHASONE. [Concomitant]
     Active Substance: DEXAMETHASONE
     Dosage: 4 MG, 4X/DAY
     Route: 042
  3. HYDROMORPHONE HYDROCHLORIDE. [Suspect]
     Active Substance: HYDROMORPHONE HYDROCHLORIDE
     Dosage: 13 MG EVERY TEN MINUTES WITH A 27 MG/H BASAL RATE
  4. OXYCODONE HYDROCHLORIDE. [Suspect]
     Active Substance: OXYCODONE HYDROCHLORIDE
     Dosage: 120 MG, 3X/DAY
     Route: 048
  5. OXYCODONE HYDROCHLORIDE. [Suspect]
     Active Substance: OXYCODONE HYDROCHLORIDE
     Indication: PAIN
     Dosage: 50 MG EVERY 8 HOURS AS NEEDED
     Route: 048
  6. IBUPROFEN. [Concomitant]
     Active Substance: IBUPROFEN
     Dosage: 400 MG, 3X/DAY
     Route: 048
  7. HYDROMORPHONE HYDROCHLORIDE. [Suspect]
     Active Substance: HYDROMORPHONE HYDROCHLORIDE
     Dosage: DOSE WAS DECREASED BY 40-50%
  8. MORPHINE SULFATE. [Suspect]
     Active Substance: MORPHINE SULFATE
     Dosage: 4 MG DEMAND DOSE AND A 10 MG/H BASAL RATE
     Route: 042
  9. MORPHINE SULFATE IMMEDIATE RELEASE [Suspect]
     Active Substance: MORPHINE SULFATE
     Dosage: 200 MG, EVERY 3 HOURS PRN
     Route: 048
  10. OXYCODONE HYDROCHLORIDE. [Suspect]
     Active Substance: OXYCODONE HYDROCHLORIDE
     Indication: PAIN
     Dosage: 60 MG, 2X/DAY
     Route: 048
  11. MORPHINE SULFATE. [Suspect]
     Active Substance: MORPHINE SULFATE
     Indication: PAIN
     Dosage: 3 MG DEMAND DOSE EVERY SIX MINUTES AND A 6 MG/H BASAL RATE
     Route: 042
  12. AVINZA [Suspect]
     Active Substance: MORPHINE SULFATE
     Dosage: 230 MG, 3X/DAY
     Route: 048
  13. OXYCODONE HYDROCHLORIDE. [Suspect]
     Active Substance: OXYCODONE HYDROCHLORIDE
     Dosage: 140 MG, 2X/DAY (EVERY 12 HOURS)
     Route: 048
  14. DEXAMETHASONE. [Concomitant]
     Active Substance: DEXAMETHASONE
     Indication: PAIN
     Dosage: 10 MG, UNK
     Route: 042
  15. LORAZEPAM. [Concomitant]
     Active Substance: LORAZEPAM
     Indication: DRUG THERAPY
     Dosage: 0.25 MG, 3X/DAY
     Route: 048
  16. LIDOCAINE /00033402/ [Concomitant]
     Active Substance: LIDOCAINE
     Dosage: UNK
     Route: 062
  17. HYDROMORPHONE HYDROCHLORIDE. [Suspect]
     Active Substance: HYDROMORPHONE HYDROCHLORIDE
     Indication: PAIN
     Dosage: 4.5 MG DEMAND DOSE EVERY 12 MINUTES WITH A 9 MG/H BASAL RATE
  18. OXYCODONE HYDROCHLORIDE. [Suspect]
     Active Substance: OXYCODONE HYDROCHLORIDE
     Dosage: 15 MG, 6 EVERY 1 DAYS
     Route: 048
  19. OXYCODONE HYDROCHLORIDE. [Suspect]
     Active Substance: OXYCODONE HYDROCHLORIDE
     Dosage: 15 MG, AS NEEDED (EVERY 4 HOURS AS NEEDED)
  20. IBUPROFEN. [Concomitant]
     Active Substance: IBUPROFEN
     Indication: PAIN
     Dosage: 800 MG, 3X/DAY
     Route: 048
  21. AVINZA [Suspect]
     Active Substance: MORPHINE SULFATE
     Indication: PAIN
     Dosage: 120 MG, 3X/DAY
     Route: 048
  22. HYDROMORPHONE HYDROCHLORIDE. [Suspect]
     Active Substance: HYDROMORPHONE HYDROCHLORIDE
     Dosage: 10 MG DEMAND DOSE EVERY FIFTEEN MINUTES AND A 20 MG/H BASAL RATE
  23. MORPHINE SULFATE IMMEDIATE RELEASE [Suspect]
     Active Substance: MORPHINE SULFATE
     Indication: PAIN
     Dosage: 60 MG, EVERY 4 HRS PRN
     Route: 048
  24. FENTANYL TRANSDERMAL SYSTEM [Suspect]
     Active Substance: FENTANYL
     Indication: PAIN
     Dosage: 200 UG, UNK
     Route: 062

REACTIONS (7)
  - Vomiting [Recovered/Resolved]
  - Hyperaesthesia [Recovered/Resolved]
  - Fatigue [Unknown]
  - Nausea [Recovered/Resolved]
  - Sedation [Recovered/Resolved]
  - Asthenia [Unknown]
  - Somnolence [Recovered/Resolved]
